FAERS Safety Report 21366130 (Version 2)
Quarter: 2022Q3

REPORT INFORMATION
  Report Type: Report from Study
  Country: JP (occurrence: JP)
  Receive Date: 20220922
  Receipt Date: 20220927
  Transmission Date: 20221027
  Serious: Yes (Hospitalization)
  Sender: FDA-Public Use
  Company Number: JP-SEATTLE GENETICS-2022SGN08773

PATIENT
  Age: 41 Year
  Sex: Male
  Weight: 52.1 kg

DRUGS (23)
  1. TUCATINIB [Suspect]
     Active Substance: TUCATINIB
     Indication: Adenocarcinoma gastric
     Dosage: 300 MG, BID
     Route: 048
     Dates: start: 20220901
  2. TRASTUZUMAB [Suspect]
     Active Substance: TRASTUZUMAB
     Indication: Adenocarcinoma gastric
     Dosage: 8 MG/KG, SINGLE
     Route: 042
     Dates: start: 20220901
  3. OXALIPLATIN [Suspect]
     Active Substance: OXALIPLATIN
     Indication: Adenocarcinoma gastric
     Dosage: 130 MG/M2, Q3WEEKS
     Route: 042
     Dates: start: 20220901
  4. CAPECITABINE [Suspect]
     Active Substance: CAPECITABINE
     Indication: Adenocarcinoma gastric
     Dosage: 1000 MG/M2
     Route: 048
     Dates: start: 20220901
  5. PEMBROLIZUMAB [Suspect]
     Active Substance: PEMBROLIZUMAB
     Indication: Adenocarcinoma gastric
     Dosage: 400 MG
     Route: 042
     Dates: start: 20220901
  6. LOPERAMIDE [Concomitant]
     Active Substance: LOPERAMIDE
     Dosage: UNK
     Route: 048
     Dates: start: 20220909
  7. CODEINE PHOSPHATE [Concomitant]
     Active Substance: CODEINE PHOSPHATE
     Indication: Cough
     Dosage: UNK
     Route: 048
     Dates: start: 20020818, end: 20220915
  8. DEXTROMETHORPHAN HYDROBROMIDE [Concomitant]
     Active Substance: DEXTROMETHORPHAN HYDROBROMIDE
     Indication: Cough
     Dosage: UNK
     Route: 048
     Dates: start: 20220818
  9. RABEPRAZOLE SODIUM [Concomitant]
     Active Substance: RABEPRAZOLE SODIUM
     Indication: Gastritis prophylaxis
     Dosage: UNK
     Route: 048
     Dates: start: 202208
  10. REBAMIPIDE [Concomitant]
     Active Substance: REBAMIPIDE
     Indication: Gastritis prophylaxis
     Dosage: UNK
     Route: 048
     Dates: start: 202208
  11. PARAPLUS [Concomitant]
     Indication: Decreased appetite
     Dosage: UNK
     Route: 042
     Dates: start: 20220831, end: 20220911
  12. OLANZAPINE [Concomitant]
     Active Substance: OLANZAPINE
     Indication: Nausea
     Dosage: UNK
     Route: 048
     Dates: start: 20220903
  13. ACETAMINOPHEN [Concomitant]
     Active Substance: ACETAMINOPHEN
     Indication: Pyrexia
     Dosage: UNK
     Route: 048
     Dates: start: 20220910, end: 20220911
  14. CLOBETASOL PROPIONATE [Concomitant]
     Active Substance: CLOBETASOL PROPIONATE
     Indication: Eczema
     Dosage: UNK
     Route: 062
     Dates: start: 20220910, end: 20220911
  15. HEPARINOID [Concomitant]
     Indication: Eczema
     Dosage: UNK
     Route: 062
     Dates: start: 20220911
  16. BETAMETHASONE BUTYRATE PROPIONATE [Concomitant]
     Active Substance: BETAMETHASONE BUTYRATE PROPIONATE
     Indication: Eczema
     Dosage: UNK
     Route: 062
     Dates: start: 20220911
  17. BILASTINE [Concomitant]
     Active Substance: BILASTINE
     Indication: Eczema
     Dosage: UNK
     Route: 048
     Dates: start: 20220911
  18. DEXAMETHASONE [Concomitant]
     Active Substance: DEXAMETHASONE
     Indication: Chemotherapy side effect prophylaxis
     Dosage: UNK
     Route: 042
     Dates: start: 20220901
  19. DEXAMETHASONE [Concomitant]
     Active Substance: DEXAMETHASONE
     Indication: Nausea
     Dosage: UNK
     Route: 048
     Dates: start: 20220902
  20. DEXAMETHASONE [Concomitant]
     Active Substance: DEXAMETHASONE
     Dosage: UNK
     Route: 048
     Dates: start: 20220904, end: 20220905
  21. PALONOSETRON HYDROCHLORIDE [Concomitant]
     Active Substance: PALONOSETRON HYDROCHLORIDE
     Indication: Chemotherapy side effect prophylaxis
     Dosage: UNK
     Route: 042
     Dates: start: 20220901
  22. FOSNETUPITANT CHLORIDE HYDROCHLORIDE [Concomitant]
     Active Substance: FOSNETUPITANT CHLORIDE HYDROCHLORIDE
     Indication: Chemotherapy side effect prophylaxis
     Dosage: UNK
     Route: 042
     Dates: start: 20220901
  23. SOYBEAN OIL [Concomitant]
     Active Substance: SOYBEAN OIL
     Indication: Decreased appetite
     Dosage: UNK
     Route: 042
     Dates: start: 20220905, end: 20220905

REACTIONS (1)
  - Pneumonitis aspiration [Recovered/Resolved]

NARRATIVE: CASE EVENT DATE: 20220916
